FAERS Safety Report 6186752-1 (Version None)
Quarter: 2009Q2

REPORT INFORMATION
  Report Type: 
  Country: None (occurrence: None)
  Receive Date: 20090508
  Receipt Date: 20090508
  Transmission Date: 20091009
  Serious: Yes (Hospitalization)
  Sender: FDA-Public Use
  Company Number: None

PATIENT
  Sex: Female
  Weight: 56.4 kg

DRUGS (4)
  1. BEVACIZUMAB (RHUMAB VEGF) [Suspect]
     Dosage: 282 MG
  2. LEUCOVORIN CALCIUM [Suspect]
     Dosage: 652 MG
  3. ELOXATIN [Suspect]
     Dosage: 139 MG
  4. FLUOROURACIL [Suspect]
     Dosage: 0 MG

REACTIONS (2)
  - ABDOMINAL PAIN [None]
  - INFUSION RELATED REACTION [None]
